FAERS Safety Report 5313139-3 (Version None)
Quarter: 2007Q2

REPORT INFORMATION
  Report Type: 
  Country: None (occurrence: None)
  Receive Date: 20070430
  Receipt Date: 20070420
  Transmission Date: 20071010
  Serious: Yes (Hospitalization)
  Sender: FDA-Public Use
  Company Number: SE-PFIZER INC-2007032925

PATIENT
  Age: 54 Year
  Sex: Female

DRUGS (1)
  1. DOSTINEX [Suspect]
     Indication: PROLACTINOMA
     Route: 048

REACTIONS (2)
  - HEMIANOPIA HOMONYMOUS [None]
  - TRANSIENT ISCHAEMIC ATTACK [None]
